FAERS Safety Report 6383865-6 (Version None)
Quarter: 2009Q3

REPORT INFORMATION
  Report Type: 
  Country: None (occurrence: None)
  Receive Date: 20090929
  Receipt Date: 20090929
  Transmission Date: 20100115
  Serious: No
  Sender: FDA-Public Use
  Company Number: None

PATIENT
  Sex: Male
  Weight: 98.8842 kg

DRUGS (1)
  1. LUNESTA [Suspect]
     Indication: SLEEP DISORDER THERAPY
     Dosage: 1 TABLET BEFORE BEDTIME PO
     Route: 048
     Dates: start: 20090923, end: 20090924

REACTIONS (2)
  - DRUG INEFFECTIVE [None]
  - FATIGUE [None]
